FAERS Safety Report 5745304-5 (Version None)
Quarter: 2008Q2

REPORT INFORMATION
  Report Type: 
  Country: None (occurrence: None)
  Receive Date: 20080521
  Receipt Date: 20080512
  Transmission Date: 20081010
  Serious: Yes (Hospitalization)
  Sender: FDA-Public Use
  Company Number: AU-ASTRAZENECA-2008AP02696

PATIENT
  Age: 14127 Day
  Sex: Female

DRUGS (13)
  1. SEROQUEL [Suspect]
     Indication: BIPOLAR II DISORDER
     Dosage: 50 MG AT NIGHT AND 25 MG PRN WITH A MAXIMUM OF 150 MG FOR 24 HOURS
     Route: 048
  2. SEROQUEL [Suspect]
     Dosage: DOSAGE INCREASED TO 150 MG DAY
     Route: 048
  3. SEROQUEL [Suspect]
     Dosage: REDUCED TO 12.5 MG GIVEN AT NIGHT
     Route: 048
  4. DIAZEPAM [Concomitant]
  5. MERSYNDOL [Concomitant]
  6. OLANZAPINE [Concomitant]
  7. PALIPERIDONE [Concomitant]
     Dosage: GIVEN IN THE MORNING
  8. LITHIUM CARBONATE [Concomitant]
     Dosage: GIVEN AT NIGHT
  9. LEVOTHYROXINE SODIUM [Concomitant]
  10. DOXYCYCLINE [Concomitant]
     Dosage: GIVEN IN THE MORNING
  11. LYRICA [Concomitant]
  12. LAMISIL [Concomitant]
  13. ZOPICLONE [Concomitant]

REACTIONS (3)
  - AGITATION [None]
  - MENTAL STATUS CHANGES [None]
  - PITTING OEDEMA [None]
